FAERS Safety Report 10330073 (Version 3)
Quarter: 2018Q1

REPORT INFORMATION
  Report Type: Spontaneous
  Country: CA (occurrence: CA)
  Receive Date: 20140721
  Receipt Date: 20180329
  Transmission Date: 20180508
  Serious: Yes (Hospitalization, Other)
  Sender: FDA-Public Use
  Company Number: CA-ELI_LILLY_AND_COMPANY-CA_040707125

PATIENT
  Age: 24 Year
  Sex: Male
  Weight: 68.18 kg

DRUGS (2)
  1. MARIJUANA [Concomitant]
     Active Substance: CANNABIS SATIVA SUBSP. INDICA TOP
     Indication: SEIZURE
  2. ZYPREXA [Suspect]
     Active Substance: OLANZAPINE
     Indication: INSOMNIA
     Dosage: 10 MG, DAILY (1/D)
     Dates: start: 200103, end: 200305

REACTIONS (42)
  - Loss of consciousness [Recovered/Resolved]
  - Memory impairment [Recovered/Resolved]
  - Tension [Recovered/Resolved]
  - Pain [Unknown]
  - Crying [Unknown]
  - Post-traumatic stress disorder [Unknown]
  - Loss of consciousness [Recovered/Resolved]
  - Foaming at mouth [Recovered/Resolved]
  - Tension [Recovered/Resolved]
  - Foaming at mouth [Recovered/Resolved]
  - Urinary incontinence [Recovered/Resolved]
  - Headache [Unknown]
  - Off label use [Unknown]
  - Generalised tonic-clonic seizure [Recovered/Resolved with Sequelae]
  - Upper limb fracture [Unknown]
  - Tremor [Recovered/Resolved]
  - Somnolence [Recovered/Resolved]
  - Eye movement disorder [Recovered/Resolved]
  - Tension [Recovered/Resolved]
  - Tremor [Recovered/Resolved]
  - Drug abuse [Unknown]
  - Lethargy [Recovered/Resolved]
  - Urinary incontinence [Recovered/Resolved]
  - Tremor [Recovered/Resolved]
  - Brain scan abnormal [Not Recovered/Not Resolved]
  - Hospitalisation [Recovered/Resolved]
  - Fall [Recovered/Resolved]
  - Lethargy [Recovered/Resolved]
  - Food craving [Unknown]
  - Blood glucose increased [Unknown]
  - Hyperglycaemia [Unknown]
  - Generalised tonic-clonic seizure [Recovered/Resolved with Sequelae]
  - Loss of employment [Not Recovered/Not Resolved]
  - Urinary incontinence [Recovered/Resolved]
  - Weight increased [Recovered/Resolved]
  - Generalised tonic-clonic seizure [Recovered/Resolved with Sequelae]
  - Brain injury [Not Recovered/Not Resolved]
  - Dyskinesia [Recovered/Resolved]
  - Somnolence [Recovered/Resolved]
  - Amnesia [Not Recovered/Not Resolved]
  - Nightmare [Unknown]
  - Emotional distress [Unknown]

NARRATIVE: CASE EVENT DATE: 200103
